FAERS Safety Report 9337216 (Version 2)
Quarter: 2013Q4

REPORT INFORMATION
  Report Type: Spontaneous
  Country: US (occurrence: US)
  Receive Date: 20130607
  Receipt Date: 20131031
  Transmission Date: 20140711
  Serious: Yes (Death, Congenital Anomaly, Other)
  Sender: FDA-Public Use
  Company Number: US-PFIZER INC-2013170898

PATIENT
  Sex: Female

DRUGS (3)
  1. ZOLOFT [Suspect]
     Indication: DEPRESSION
     Dosage: UNK
     Route: 064
     Dates: start: 2004, end: 2005
  2. PRENATAL VITAMINS [Concomitant]
     Dosage: UNK
     Route: 064
  3. INSULIN [Concomitant]
     Dosage: UNK
     Route: 064

REACTIONS (7)
  - Foetal cystic hygroma [Fatal]
  - Truncus arteriosus persistent [Fatal]
  - Premature baby [Unknown]
  - Foetal exposure during pregnancy [Fatal]
  - Pulmonary hypoplasia [Fatal]
  - Renal aplasia [Fatal]
  - Ventricular septal defect [Fatal]
